FAERS Safety Report 5787031-4 (Version None)
Quarter: 2008Q2

REPORT INFORMATION
  Report Type: 
  Country: None (occurrence: None)
  Receive Date: 20080625
  Receipt Date: 20080617
  Transmission Date: 20081010
  Serious: Yes (Other)
  Sender: FDA-Public Use
  Company Number: DE-BAYER-200812747GPV

PATIENT
  Age: 71 Year
  Sex: Female
  Weight: 65 kg

DRUGS (1)
  1. BETAFERON [Suspect]
     Indication: MULTIPLE SCLEROSIS
     Route: 058
     Dates: start: 20071122, end: 20080103

REACTIONS (6)
  - CHEST PAIN [None]
  - GAIT DISTURBANCE [None]
  - NAUSEA [None]
  - SLEEP DISORDER [None]
  - TACHYCARDIA [None]
  - VESTIBULAR DISORDER [None]
